FAERS Safety Report 7431797-4 (Version None)
Quarter: 2011Q2

REPORT INFORMATION
  Report Type: 
  Country: None (occurrence: None)
  Receive Date: 20110422
  Receipt Date: 20110211
  Transmission Date: 20111010
  Serious: No
  Sender: FDA-Public Use
  Company Number: US-JNJFOC-20110204144

PATIENT
  Age: 26 Year
  Sex: Female
  Weight: 81.65 kg

DRUGS (5)
  1. VISTARIL [Concomitant]
     Dosage: AS NEEDED
  2. INVEGA SUSTENNA [Suspect]
     Indication: SCHIZOPHRENIA
     Route: 030
  3. RISPERIDONE [Suspect]
     Indication: SCHIZOPHRENIA
  4. NEURONTIN [Concomitant]
  5. COGENTIN [Concomitant]
     Indication: EXTRAPYRAMIDAL DISORDER
     Dosage: AS NEEDED

REACTIONS (2)
  - PRODUCT QUALITY ISSUE [None]
  - SCHIZOPHRENIA [None]
